FAERS Safety Report 4306668-2 (Version None)
Quarter: 2004Q1

REPORT INFORMATION
  Report Type: 
  Country: None (occurrence: None)
  Receive Date: 20040225
  Receipt Date: 20031118
  Transmission Date: 20041129
  Serious: No
  Sender: FDA-Public Use
  Company Number: US-BRISTOL-MYERS SQUIBB COMPANY-12437992

PATIENT
  Age: 50 Year
  Sex: Female
  Weight: 73 kg

DRUGS (3)
  1. EXCEDRIN (MIGRAINE) [Suspect]
     Indication: TENSION HEADACHE
     Route: 048
  2. IMITREX [Concomitant]
  3. VALIUM [Concomitant]

REACTIONS (1)
  - GASTROINTESTINAL DISORDER [None]
